FAERS Safety Report 7658987-X (Version None)
Quarter: 2011Q3

REPORT INFORMATION
  Report Type: 
  Country: None (occurrence: None)
  Receive Date: 20110805
  Receipt Date: 20110722
  Transmission Date: 20111222
  Serious: Yes (Hospitalization)
  Sender: FDA-Public Use
  Company Number: US-ELI_LILLY_AND_COMPANY-US201107001471

PATIENT
  Sex: Female

DRUGS (5)
  1. FORTEO [Suspect]
     Indication: OSTEOPOROSIS
     Dosage: 20 UG, QD
  2. HYDROCODONE [Concomitant]
  3. CALCIUM +VIT D [Concomitant]
  4. BUSPIRONE HCL [Concomitant]
  5. LORAZEPAM [Concomitant]

REACTIONS (3)
  - OPEN WOUND [None]
  - WOUND INFECTION STAPHYLOCOCCAL [None]
  - PAIN [None]
